FAERS Safety Report 9729778 (Version 2)
Quarter: 2013Q4

REPORT INFORMATION
  Report Type: Spontaneous
  Country: US (occurrence: US)
  Receive Date: 20131204
  Receipt Date: 20131204
  Transmission Date: 20140711
  Serious: No
  Sender: FDA-Public Use
  Company Number: US-GILEAD-2009-0021860

PATIENT
  Sex: Female
  Weight: 90.72 kg

DRUGS (16)
  1. LETAIRIS [Suspect]
     Indication: PULMONARY ARTERIAL HYPERTENSION
     Route: 048
     Dates: start: 20090416
  2. NORVASC [Concomitant]
  3. COREG [Concomitant]
  4. ZETIA [Concomitant]
  5. LASIX [Concomitant]
  6. ACTOS [Concomitant]
  7. GLUCOPHAGE [Concomitant]
  8. LANTUS [Concomitant]
  9. AVAPRO [Concomitant]
  10. HUMALOG MIX [Concomitant]
  11. PAXIL [Concomitant]
  12. PROTONIX [Concomitant]
  13. NIASPAN [Concomitant]
  14. UROQUID [Concomitant]
  15. CALCITROL [Concomitant]
  16. FOLIC ACID [Concomitant]

REACTIONS (3)
  - Fatigue [Unknown]
  - Unevaluable event [Unknown]
  - Local swelling [Unknown]
